FAERS Safety Report 13287007 (Version 1)
Quarter: 2017Q1

REPORT INFORMATION
  Report Type: Spontaneous
  Country: DE (occurrence: DE)
  Receive Date: 20170302
  Receipt Date: 20170302
  Transmission Date: 20170428
  Serious: Yes (Hospitalization, Other)
  Sender: FDA-Public Use
  Company Number: DE-BAYER-2017-036383

PATIENT
  Age: 60 Year
  Sex: Female

DRUGS (2)
  1. GADOVIST [Suspect]
     Active Substance: GADOBUTROL
     Indication: NUCLEAR MAGNETIC RESONANCE IMAGING
     Dosage: 7.5 ML, ONCE
     Route: 042
     Dates: start: 20161221, end: 20161221
  2. GADOVIST [Suspect]
     Active Substance: GADOBUTROL
     Indication: ABDOMINAL PAIN UPPER

REACTIONS (12)
  - C-reactive protein increased [Recovering/Resolving]
  - Headache [None]
  - Abdominal pain upper [None]
  - Fatigue [None]
  - Dizziness [None]
  - Toxicity to various agents [None]
  - Muscle spasms [None]
  - Gamma-glutamyltransferase increased [Recovering/Resolving]
  - Chills [None]
  - Nausea [None]
  - Aspartate aminotransferase increased [Recovering/Resolving]
  - Myalgia [None]

NARRATIVE: CASE EVENT DATE: 201612
